FAERS Safety Report 4598677-3 (Version None)
Quarter: 2005Q2

REPORT INFORMATION
  Report Type: 
  Country: None (occurrence: None)
  Receive Date: 20050304
  Receipt Date: 20050222
  Transmission Date: 20051028
  Serious: Yes (Hospitalization, Other)
  Sender: FDA-Public Use
  Company Number: BR-JNJFOC-20041206802

PATIENT
  Age: 28 Year
  Sex: Female
  Weight: 78 kg

DRUGS (2)
  1. ORTHO EVRA [Suspect]
     Indication: CONTRACEPTION
     Route: 062
     Dates: start: 20040401
  2. FERROUS SULFATE TAB [Concomitant]

REACTIONS (4)
  - ABDOMINAL PAIN [None]
  - DRUG EXPOSURE DURING PREGNANCY [None]
  - PLACENTA PRAEVIA [None]
  - UNINTENDED PREGNANCY [None]
